FAERS Safety Report 6667431-0 (Version None)
Quarter: 2010Q2

REPORT INFORMATION
  Report Type: 
  Country: None (occurrence: None)
  Receive Date: 20100405
  Receipt Date: 20100317
  Transmission Date: 20101027
  Serious: Yes (Death, Life-Threatening, Hospitalization, Disabling)
  Sender: FDA-Public Use
  Company Number: JP-BAYER-200914529BYL

PATIENT
  Age: 72 Year
  Sex: Male

DRUGS (13)
  1. FLUDARA [Suspect]
     Indication: FOLLICLE CENTRE LYMPHOMA, FOLLICULAR GRADE I, II, III
     Route: 041
     Dates: start: 20090408, end: 20090410
  2. FLUDARA [Suspect]
     Route: 041
     Dates: start: 20090430, end: 20090502
  3. FLUDARA [Suspect]
     Route: 041
     Dates: start: 20090521, end: 20090523
  4. FLUDARA [Suspect]
     Route: 041
     Dates: start: 20090611, end: 20090613
  5. CYCLOPHOSPHAMIDE [Concomitant]
     Indication: FOLLICLE CENTRE LYMPHOMA, FOLLICULAR GRADE I, II, III
     Route: 041
     Dates: start: 20090408, end: 20090410
  6. CYCLOPHOSPHAMIDE [Concomitant]
     Route: 041
     Dates: start: 20090430, end: 20090502
  7. CYCLOPHOSPHAMIDE [Concomitant]
     Route: 041
     Dates: start: 20090521, end: 20090523
  8. CYCLOPHOSPHAMIDE [Concomitant]
     Route: 041
     Dates: start: 20090611, end: 20090613
  9. RITUXAN [Concomitant]
     Indication: FOLLICLE CENTRE LYMPHOMA, FOLLICULAR GRADE I, II, III
     Route: 041
     Dates: start: 20090429, end: 20090429
  10. RITUXAN [Concomitant]
     Route: 041
     Dates: start: 20090520, end: 20090520
  11. RITUXAN [Concomitant]
     Route: 041
     Dates: start: 20090610, end: 20090610
  12. RITUXAN [Concomitant]
     Route: 041
     Dates: start: 20090909, end: 20090909
  13. RITUXAN [Concomitant]
     Route: 041
     Dates: start: 20090930, end: 20090930

REACTIONS (3)
  - AUTOIMMUNE THROMBOCYTOPENIA [None]
  - MYELODYSPLASTIC SYNDROME [None]
  - PNEUMONIA [None]
